FAERS Safety Report 9248425 (Version 1)
Quarter: 2013Q1

REPORT INFORMATION
  Report Type: Spontaneous
  Country: US (occurrence: None)
  Receive Date: 20130305
  Receipt Date: 20130305
  Transmission Date: 20140127
  Serious: Yes (Hospitalization)
  Sender: FDA-Public Use
  Company Number: 163-21880-12092847

PATIENT
  Age: 56 Year
  Sex: Female
  Weight: 71.67 kg

DRUGS (13)
  1. REVLIMID (LENALIDOMIDE) ( 10 MILLIGRAM, CAPSULES) [Suspect]
     Indication: PLASMA CELL MYELOMA
     Dosage: 21 IN 21 D
     Route: 048
     Dates: start: 20120802
  2. TRAZODONE (TRAZODONE) [Suspect]
  3. STOOL SOFTENER (DOCUSATE SODIUM) [Suspect]
  4. OXYCONTIN (OXYCODONE HYDROCHLORIDE) [Suspect]
  5. OXYCODONE (OXYCODONE) [Suspect]
  6. NEXIUM [Suspect]
  7. MIRALAX [Suspect]
  8. LYRICA (PREGABALIN) [Suspect]
  9. DIAZEPAM (DIAZEPAM) [Suspect]
  10. ACYCLOVIR (ACICLOVIR) (ACICLOVIR) [Suspect]
  11. ALLEGRA [Suspect]
  12. BETHANECHOL [Suspect]
  13. ZOMETA (ZOLEDRONIC ACID) [Suspect]

REACTIONS (2)
  - Local swelling [None]
  - Pain in extremity [None]
